FAERS Safety Report 22246964 (Version 1)
Quarter: 2023Q2

REPORT INFORMATION
  Report Type: Spontaneous
  Country: US (occurrence: US)
  Receive Date: 20230424
  Receipt Date: 20230424
  Transmission Date: 20230722
  Serious: Yes (Death, Hospitalization)
  Sender: FDA-Public Use
  Company Number: US-TEVA-2023-US-2879307

PATIENT
  Age: 75 Year
  Sex: Male

DRUGS (3)
  1. PIRFENIDONE [Suspect]
     Active Substance: PIRFENIDONE
     Indication: Idiopathic pulmonary fibrosis
     Dosage: 801 MILLIGRAM DAILY;
     Route: 048
  2. PIRFENIDONE [Suspect]
     Active Substance: PIRFENIDONE
     Dosage: 1302 MILLIGRAM DAILY; DIFFERS FROM THE RECOMMENDED DOSAGE OF 534 MG THREE TIMES A DAY
     Route: 048
  3. PIRFENIDONE [Suspect]
     Active Substance: PIRFENIDONE
     Dosage: 2403 MILLIGRAM DAILY;
     Route: 048
     Dates: end: 202208

REACTIONS (9)
  - Death [Fatal]
  - Hospitalisation [Unknown]
  - Illness [Unknown]
  - Dizziness [Unknown]
  - Decreased appetite [Unknown]
  - Weight decreased [Unknown]
  - Feeling abnormal [Unknown]
  - Prescribed underdose [Unknown]
  - Product dose omission issue [Unknown]

NARRATIVE: CASE EVENT DATE: 20220101
